FAERS Safety Report 9991902 (Version 1)
Quarter: 2014Q1

REPORT INFORMATION
  Report Type: Spontaneous
  Country: US (occurrence: US)
  Receive Date: 20140310
  Receipt Date: 20140310
  Transmission Date: 20141002
  Serious: No
  Sender: FDA-Public Use
  Company Number: US-BAYER-2014-036646

PATIENT
  Age: 78 Year
  Sex: Male
  Weight: 109 kg

DRUGS (7)
  1. ALEVE CAPLET [Suspect]
     Indication: MUSCULOSKELETAL STIFFNESS
     Dosage: 1 DF, TID
     Dates: start: 20140301
  2. ALEVE CAPLET [Suspect]
     Indication: ANTIINFLAMMATORY THERAPY
  3. PRAVASTATIN [Concomitant]
  4. GLYBURIDE [Concomitant]
  5. FINASTERIDE [Concomitant]
  6. TAMSULOSIN [Concomitant]
  7. BAYER ASPIRIN REGIMEN REGULAR 325 MG STRENGTH [Concomitant]

REACTIONS (1)
  - Off label use [None]
